FAERS Safety Report 15142609 (Version 1)
Quarter: 2018Q3

REPORT INFORMATION
  Report Type: Spontaneous
  Country: US (occurrence: US)
  Receive Date: 20180617
  Receipt Date: 20180617
  Transmission Date: 20181010
  Serious: Yes (Other)
  Sender: FDA-Public Use
  Company Number: None

PATIENT
  Age: 66 Year
  Sex: Male
  Weight: 81 kg

DRUGS (1)
  1. SUNFOOD FOOD GRADE HYDROGEN PEROXIDE, ESSENTIAL OXYGEN 3% FOOD GRADE H [Suspect]
     Active Substance: HYDROGEN PEROXIDE
     Indication: DRUG THERAPY

REACTIONS (3)
  - Product use issue [None]
  - Product use complaint [None]
  - Off label use [None]

NARRATIVE: CASE EVENT DATE: 20180617
